FAERS Safety Report 5933072-3 (Version None)
Quarter: 2008Q4

REPORT INFORMATION
  Report Type: 
  Country: None (occurrence: None)
  Receive Date: 20081023
  Receipt Date: 20081013
  Transmission Date: 20090506
  Serious: Yes (Life-Threatening)
  Sender: FDA-Public Use
  Company Number: 08H-163-0315055-00

PATIENT
  Age: 53 Year
  Sex: Female

DRUGS (2)
  1. MORPHINE SULFATE INJ [Suspect]
     Indication: PAIN
     Dosage: 5MG/ML, 3MG DOSE, 8 MIN LOCKOUT, INTRAVENOUS 1MG/ML, 3MG, 10 MIN LOCKOUT, INTRAVENOUS
     Route: 042
     Dates: start: 20081001, end: 20081001
  2. PERCOCET [Concomitant]
     Dosage: ORAL
     Route: 048

REACTIONS (5)
  - CARDIO-RESPIRATORY ARREST [None]
  - INADEQUATE ANALGESIA [None]
  - RESPIRATORY RATE DECREASED [None]
  - SOMNOLENCE [None]
  - UNRESPONSIVE TO STIMULI [None]
